FAERS Safety Report 5585727-0 (Version None)
Quarter: 2008Q1

REPORT INFORMATION
  Report Type: 
  Country: None (occurrence: None)
  Receive Date: 20080109
  Receipt Date: 20080109
  Transmission Date: 20080703
  Serious: Yes (Death, Hospitalization)
  Sender: FDA-Public Use
  Company Number: PHHO2004US02352

PATIENT
  Age: 83 Year
  Sex: Female
  Weight: 59.1 kg

DRUGS (4)
  1. VITAMIN D [Concomitant]
     Indication: OSTEOPOROTIC FRACTURE
     Dosage: 400 IU, BID
     Route: 048
  2. CALCIUM CARBONATE [Concomitant]
     Indication: OSTEOPOROTIC FRACTURE
     Dosage: 500 MG, BID
     Route: 048
  3. ZOLEDRONIC ACID [Suspect]
     Indication: OSTEOPOROTIC FRACTURE
     Dosage: DOUBLE BLIND
     Route: 042
     Dates: start: 20030811
  4. ZOLEDRONIC ACID [Suspect]
     Dosage: 5MG, ONCE YEARLY

REACTIONS (8)
  - ABSCESS LIMB [None]
  - CARDIAC ARREST [None]
  - CELLULITIS [None]
  - LEG AMPUTATION [None]
  - NECROSIS [None]
  - OSTEOMYELITIS [None]
  - SKIN ULCER [None]
  - STAPHYLOCOCCAL INFECTION [None]
